FAERS Safety Report 24303027 (Version 1)
Quarter: 2024Q3

REPORT INFORMATION
  Report Type: Spontaneous
  Country: US (occurrence: None)
  Receive Date: 20240909
  Receipt Date: 20240909
  Transmission Date: 20241017
  Serious: Yes (Hospitalization)
  Sender: Public
  Company Number: None

PATIENT
  Sex: Male

DRUGS (5)
  1. OPSUMIT [Suspect]
     Active Substance: MACITENTAN
     Indication: Pulmonary hypertension
     Dosage: FREQUENCY : DAILY;?
     Route: 048
     Dates: start: 202407
  2. UPTRAVI [Concomitant]
     Active Substance: SELEXIPAG
  3. ACTHAR [Concomitant]
  4. ADEMPAS [Concomitant]
     Active Substance: RIOCIGUAT
  5. OFEV [Concomitant]
     Active Substance: NINTEDANIB

REACTIONS (1)
  - Ankle fracture [None]
